FAERS Safety Report 4433045-6 (Version None)
Quarter: 2004Q3

REPORT INFORMATION
  Report Type: 
  Country: None (occurrence: None)
  Receive Date: 20040721
  Receipt Date: 20030730
  Transmission Date: 20050211
  Serious: Yes (Hospitalization)
  Sender: FDA-Public Use
  Company Number: WAES 0307USA03594

PATIENT
  Age: 65 Year
  Sex: Female

DRUGS (6)
  1. VIOXX [Suspect]
     Dosage: 25 MG/DAILY/PO
     Route: 048
     Dates: start: 20020927, end: 20030730
  2. LIPITOR [Concomitant]
  3. PRILOSEC [Concomitant]
  4. SYNTHROID [Concomitant]
  5. BISOPROLOL FUMARATE (+) HYDROCHL [Concomitant]
  6. GEMFIBROZIL [Concomitant]

REACTIONS (1)
  - DYSPEPSIA [None]
